FAERS Safety Report 4694505-6 (Version None)
Quarter: 2005Q2

REPORT INFORMATION
  Report Type: 
  Country: None (occurrence: None)
  Receive Date: 20050614
  Receipt Date: 20050322
  Transmission Date: 20051028
  Serious: No
  Sender: FDA-Public Use
  Company Number: USA050393888

PATIENT
  Age: 68 Year
  Sex: Male

DRUGS (9)
  1. CIALIS [Suspect]
     Indication: ERECTILE DYSFUNCTION
     Dosage: 20 MG
  2. FELODIPINE [Concomitant]
  3. PLAVIX [Concomitant]
  4. PROZAC [Concomitant]
  5. HYDROCHLOROTHIAZIDE [Concomitant]
  6. CANDESARTAN [Concomitant]
  7. METOPROLOL [Concomitant]
  8. COUMADIN [Concomitant]
  9. LOVASTATIN [Concomitant]

REACTIONS (1)
  - DRUG INEFFECTIVE [None]
